FAERS Safety Report 7637007-7 (Version None)
Quarter: 2011Q3

REPORT INFORMATION
  Report Type: 
  Country: None (occurrence: None)
  Receive Date: 20110726
  Receipt Date: 20110725
  Transmission Date: 20111222
  Serious: Yes (Other)
  Sender: FDA-Public Use
  Company Number: JP-PFIZER INC-2011162336

PATIENT
  Age: 40 Year
  Sex: Female

DRUGS (2)
  1. CELECOXIB [Suspect]
     Dosage: 100 MG DAILY
  2. CELECOXIB [Suspect]
     Dosage: 100 MG DAILY
     Route: 048
     Dates: start: 20110704

REACTIONS (2)
  - SHOCK [None]
  - URTICARIA [None]
